FAERS Safety Report 7875754-2 (Version None)
Quarter: 2011Q4

REPORT INFORMATION
  Report Type: 
  Country: None (occurrence: None)
  Receive Date: 20111031
  Receipt Date: 20111021
  Transmission Date: 20120403
  Serious: Yes (Other)
  Sender: FDA-Public Use
  Company Number: US-BAYER-2011-102981

PATIENT
  Sex: Female

DRUGS (1)
  1. YAZ [Suspect]
     Dosage: UNK
     Dates: start: 20071216

REACTIONS (4)
  - NEPHROLITHIASIS [None]
  - PAIN [None]
  - CHOLECYSTECTOMY [None]
  - INJURY [None]
